FAERS Safety Report 9516661 (Version 1)
Quarter: 2013Q3

REPORT INFORMATION
  Report Type: Spontaneous
  Country: US (occurrence: US)
  Receive Date: 20130911
  Receipt Date: 20130911
  Transmission Date: 20140515
  Serious: No
  Sender: FDA-Public Use
  Company Number: US-BAYER-2013-108726

PATIENT
  Sex: Female
  Weight: 82 kg

DRUGS (9)
  1. BETASERON [Suspect]
     Dosage: 0.25 MG, QOD
     Route: 058
  2. VESICARE [Concomitant]
  3. ZANAFLEX [Concomitant]
     Dosage: 2 MG, UNK
  4. ALFUZOSIN [Concomitant]
     Dosage: 10 MG, UNK
  5. VITAMIN D [Concomitant]
  6. FISH OIL [Concomitant]
  7. BACLOFEN [Concomitant]
  8. CELEXA [Concomitant]
  9. ASPIRIN [Concomitant]

REACTIONS (1)
  - Muscle spasticity [Unknown]
